FAERS Safety Report 8619086-3 (Version None)
Quarter: 2012Q3

REPORT INFORMATION
  Report Type: 
  Country: None (occurrence: None)
  Receive Date: 20120824
  Receipt Date: 20120821
  Transmission Date: 20120928
  Serious: Yes (Death)
  Sender: FDA-Public Use
  Company Number: PHHY2012MX072598

PATIENT
  Sex: Male

DRUGS (2)
  1. VALSARTAN/HYDROCHLOROTHIAZIDE [Suspect]
     Indication: HYPERTENSION
     Dosage: 1 DF (160 MG VALS/12.5 MG HCT) A DAILY
     Dates: end: 20120701
  2. TEGRETOL [Suspect]
     Dosage: 1 DF A DAY
     Dates: start: 20120120

REACTIONS (1)
  - DEATH [None]
